FAERS Safety Report 4750958-6 (Version None)
Quarter: 2005Q3

REPORT INFORMATION
  Report Type: 
  Country: None (occurrence: None)
  Receive Date: 20050822
  Receipt Date: 20050808
  Transmission Date: 20060218
  Serious: Yes (Hospitalization)
  Sender: FDA-Public Use
  Company Number: 2005064842

PATIENT
  Age: 51 Year
  Sex: Female

DRUGS (2)
  1. NON-DROWSY SUDAFED CONGESTION RELIEF CAPSULES (PHENYLEPHRINE) [Suspect]
     Indication: NASAL CONGESTION
     Dosage: 1 TABLET TWICE , ORAL
     Route: 048
     Dates: start: 20050331, end: 20050401
  2. TRISEKVENS (ESTRADIOL, ESTRIOL, NORETHISTERONE ACETATE) [Concomitant]

REACTIONS (17)
  - BLOOD CREATINE PHOSPHOKINASE INCREASED [None]
  - BLOOD GLUCOSE INCREASED [None]
  - CEREBELLAR SYNDROME [None]
  - CONFUSIONAL STATE [None]
  - COORDINATION ABNORMAL [None]
  - DEPRESSED LEVEL OF CONSCIOUSNESS [None]
  - DIPLOPIA [None]
  - DIZZINESS [None]
  - FACIAL PALSY [None]
  - FEELING ABNORMAL [None]
  - GAIT DISTURBANCE [None]
  - HEMIPARESIS [None]
  - NYSTAGMUS [None]
  - POSTURE ABNORMAL [None]
  - SPEECH DISORDER [None]
  - STARING [None]
  - TRANSIENT ISCHAEMIC ATTACK [None]
